FAERS Safety Report 16449230 (Version 1)
Quarter: 2019Q2

REPORT INFORMATION
  Report Type: Spontaneous
  Country: US (occurrence: US)
  Receive Date: 20190508
  Receipt Date: 20190508
  Transmission Date: 20190711
  Serious: Yes (Disabling)
  Sender: FDA-Public Use
  Company Number: None

PATIENT
  Age: 72 Year
  Sex: Female
  Weight: 90.72 kg

DRUGS (12)
  1. COENZYME Q10 [Concomitant]
     Active Substance: UBIDECARENONE
  2. VITAMIN D3 [Concomitant]
     Active Substance: CHOLECALCIFEROL
  3. IRON [Concomitant]
     Active Substance: IRON
  4. TURMERIC [Concomitant]
     Active Substance: HERBALS\TURMERIC
  5. METOPROLOL. [Concomitant]
     Active Substance: METOPROLOL
  6. B-12 + FOLIC ACID [Concomitant]
  7. ECHINECEA [Concomitant]
  8. CALCIUM [Concomitant]
     Active Substance: CALCIUM
  9. ALENDRONATE SODIUM 70MG [Suspect]
     Active Substance: ALENDRONATE SODIUM
     Indication: OSTEOPOROSIS
     Dosage: ?          QUANTITY:1 DF DOSAGE FORM;?
     Route: 048
     Dates: start: 20180122, end: 20190318
  10. LISINOPRIL. [Concomitant]
     Active Substance: LISINOPRIL
  11. BAYER BACK AND BODY EXTRA STRENGTH [Concomitant]
     Active Substance: ASPIRIN\CAFFEINE
  12. MAGNESIUM [Concomitant]
     Active Substance: MAGNESIUM

REACTIONS (7)
  - Arthralgia [None]
  - Muscle spasms [None]
  - Abdominal discomfort [None]
  - Eructation [None]
  - Back pain [None]
  - Flatulence [None]
  - Bone pain [None]

NARRATIVE: CASE EVENT DATE: 20180129
